FAERS Safety Report 5562741-2 (Version None)
Quarter: 2007Q4

REPORT INFORMATION
  Report Type: 
  Country: None (occurrence: None)
  Receive Date: 20071217
  Receipt Date: 20071207
  Transmission Date: 20080405
  Serious: Yes (Other)
  Sender: FDA-Public Use
  Company Number: PHBS2007AR20741

PATIENT
  Age: 70 Year
  Sex: Male

DRUGS (1)
  1. VOLTAREN [Suspect]
     Dosage: UNK, BID
     Dates: start: 20071201, end: 20071202

REACTIONS (4)
  - BLISTER [None]
  - ERYTHEMA [None]
  - PRURITUS [None]
  - URTICARIA [None]
